FAERS Safety Report 14621082 (Version 3)
Quarter: 2018Q2

REPORT INFORMATION
  Report Type: Spontaneous
  Country: PT (occurrence: PT)
  Receive Date: 20180309
  Receipt Date: 20180406
  Transmission Date: 20180711
  Serious: Yes (Life-Threatening, Hospitalization)
  Sender: FDA-Public Use
  Company Number: PT-AUROBINDO-AUR-APL-2018-012089

PATIENT
  Age: 38 Year
  Sex: Male

DRUGS (19)
  1. GENTAMICIN. [Suspect]
     Active Substance: GENTAMICIN
     Dosage: ()
  2. ATAZANAVIR. [Concomitant]
     Active Substance: ATAZANAVIR SULFATE
     Dosage: ()
  3. ATAZANAVIR. [Concomitant]
     Active Substance: ATAZANAVIR SULFATE
     Dosage: ()
  4. CIPROFLOXACIN. [Suspect]
     Active Substance: CIPROFLOXACIN
     Dosage: ()
  5. GENTAMICIN. [Suspect]
     Active Substance: GENTAMICIN
     Dosage: ()
  6. CIPROFLOXACIN. [Suspect]
     Active Substance: CIPROFLOXACIN
     Dosage: ()
  7. GENTAMICIN. [Suspect]
     Active Substance: GENTAMICIN
     Dosage: ()
  8. LOPINAVIR [Concomitant]
     Active Substance: LOPINAVIR
     Dosage: ()
  9. RALTEGRAVIR. [Concomitant]
     Active Substance: RALTEGRAVIR
     Indication: HIV INFECTION
  10. ATAZANAVIR. [Concomitant]
     Active Substance: ATAZANAVIR SULFATE
     Indication: HIV INFECTION
     Dosage: ()
  11. CIPROFLOXACIN. [Suspect]
     Active Substance: CIPROFLOXACIN
     Indication: PNEUMONIA BORDETELLA
     Dosage: ()
  12. GENTAMICIN. [Suspect]
     Active Substance: GENTAMICIN
     Indication: PNEUMONIA BORDETELLA
     Dosage: ()
     Route: 065
  13. LOPINAVIR [Concomitant]
     Active Substance: LOPINAVIR
     Dosage: ()
  14. RITONAVIR. [Concomitant]
     Active Substance: RITONAVIR
     Dosage: ()
  15. TAZOBACTAM [Suspect]
     Active Substance: TAZOBACTAM
     Indication: PNEUMONIA BORDETELLA
     Dosage: ()
  16. LOPINAVIR [Concomitant]
     Active Substance: LOPINAVIR
     Indication: HIV INFECTION
     Dosage: ()
  17. CIPROFLOXACIN. [Suspect]
     Active Substance: CIPROFLOXACIN
     Dosage: ()
  18. PIPERACILLIN AND TAZOBACTAM [Suspect]
     Active Substance: PIPERACILLIN SODIUM\TAZOBACTAM SODIUM
     Dosage: ()
  19. RITONAVIR. [Concomitant]
     Active Substance: RITONAVIR
     Indication: PRODUCT USED FOR UNKNOWN INDICATION
     Dosage: ()

REACTIONS (4)
  - Acute kidney injury [Recovering/Resolving]
  - Nephrocalcinosis [Unknown]
  - Septic shock [Unknown]
  - Drug ineffective [Unknown]

NARRATIVE: CASE EVENT DATE: 20160201
